FAERS Safety Report 25726092 (Version 1)
Quarter: 2025Q3

REPORT INFORMATION
  Report Type: Spontaneous
  Country: US (occurrence: None)
  Receive Date: 20250824
  Receipt Date: 20250824
  Transmission Date: 20251020
  Serious: Yes (Other)
  Sender: FDA-CTU
  Company Number: None

PATIENT
  Age: 54 Year
  Sex: Female
  Weight: 99 kg

DRUGS (11)
  1. DESVENLAFAXINE [Suspect]
     Active Substance: DESVENLAFAXINE
     Indication: Depression
     Dosage: OTHER QUANTITY : 1 CAPSULE(S);?FREQUENCY : AT BEDTIME;?
     Route: 048
  2. DEVICE [Concomitant]
     Active Substance: DEVICE
  3. ROSUVASTATIN [Concomitant]
     Active Substance: ROSUVASTATIN
  4. MELOXICAM [Concomitant]
     Active Substance: MELOXICAM
  5. LYRICA [Concomitant]
     Active Substance: PREGABALIN
  6. WELLBUTRIN [Concomitant]
     Active Substance: BUPROPION HYDROCHLORIDE
  7. CLONAZEPAM [Concomitant]
     Active Substance: CLONAZEPAM
  8. VITAMINS [Concomitant]
     Active Substance: VITAMINS
  9. GLUCOSAMINE [Concomitant]
     Active Substance: GLUCOSAMINE
  10. CHONDROITIN [Concomitant]
     Active Substance: CHONDROITIN
  11. CALCIUM [Concomitant]
     Active Substance: CALCIUM

REACTIONS (5)
  - Abnormal sleep-related event [None]
  - Sleep talking [None]
  - Sleep apnoea syndrome [None]
  - Restless legs syndrome [None]
  - Periodic limb movement disorder [None]

NARRATIVE: CASE EVENT DATE: 20250701
